FAERS Safety Report 6418141-6 (Version None)
Quarter: 2009Q4

REPORT INFORMATION
  Report Type: 
  Country: None (occurrence: None)
  Receive Date: 20091026
  Receipt Date: 20091013
  Transmission Date: 20100525
  Serious: Yes (Life-Threatening, Hospitalization)
  Sender: FDA-Public Use
  Company Number: ADR38252009

PATIENT
  Age: 82 Year
  Sex: Male

DRUGS (1)
  1. SIMVASTATIN [Suspect]
     Dosage: 40 MG

REACTIONS (4)
  - ACUTE MYOCARDIAL INFARCTION [None]
  - FALL [None]
  - RENAL FAILURE ACUTE [None]
  - RHABDOMYOLYSIS [None]
